FAERS Safety Report 26131904 (Version 3)
Quarter: 2025Q4

REPORT INFORMATION
  Report Type: Report from Study
  Country: CA (occurrence: CA)
  Receive Date: 20251208
  Receipt Date: 20251223
  Transmission Date: 20260117
  Serious: Yes (Other)
  Sender: PFIZER
  Company Number: CA-PFIZER INC-PV202500143385

PATIENT
  Age: 63 Year
  Sex: Female

DRUGS (4)
  1. MEKTOVI [Suspect]
     Active Substance: BINIMETINIB
     Indication: Colorectal cancer metastatic
     Dosage: 45 MG, 2X/DAY (6 TABLETS A DAY)
     Route: 048
     Dates: start: 20251121, end: 20251127
  2. MEKTOVI [Suspect]
     Active Substance: BINIMETINIB
     Dosage: 30 MG, DAILY (4 TABLETS A DAY)
     Route: 048
     Dates: start: 20251204
  3. BRAFTOVI [Suspect]
     Active Substance: ENCORAFENIB
     Indication: Colorectal cancer metastatic
     Dosage: 450 MG, 1X/DAY
     Dates: end: 20251127
  4. BRAFTOVI [Suspect]
     Active Substance: ENCORAFENIB
     Dosage: 450 MG, 1X/DAY
     Dates: start: 20251204

REACTIONS (2)
  - Retinal deposits [Recovered/Resolved]
  - Off label use [Unknown]

NARRATIVE: CASE EVENT DATE: 20251121
